FAERS Safety Report 8437425-3 (Version None)
Quarter: 2012Q2

REPORT INFORMATION
  Report Type: 
  Country: None (occurrence: None)
  Receive Date: 20120614
  Receipt Date: 20120323
  Transmission Date: 20120825
  Serious: No
  Sender: FDA-Public Use
  Company Number: US-AMGEN-USASP2011004625

PATIENT
  Age: 57 Year
  Sex: Female
  Weight: 94.785 kg

DRUGS (1)
  1. XGEVA [Suspect]
     Indication: BREAST CANCER METASTATIC
     Dosage: 120 MG, Q4WK
     Dates: start: 20110121

REACTIONS (4)
  - PYREXIA [None]
  - BONE PAIN [None]
  - GAIT DISTURBANCE [None]
  - CHILLS [None]
